FAERS Safety Report 11771538 (Version 1)
Quarter: 2015Q4

REPORT INFORMATION
  Report Type: Spontaneous
  Country: US (occurrence: None)
  Receive Date: 20151123
  Receipt Date: 20151123
  Transmission Date: 20160304
  Serious: No
  Sender: FDA-Public Use
  Company Number: None

PATIENT

DRUGS (2)
  1. DOXYCYCLINE. [Suspect]
     Active Substance: DOXYCYCLINE
     Indication: CORNEAL EROSION
     Dosage: 1 PILL
     Route: 048
     Dates: start: 20150728
  2. FLUOROMETHOLONE. [Suspect]
     Active Substance: FLUOROMETHOLONE
     Indication: CORNEAL EROSION
     Dosage: INTO THE EYE
     Dates: start: 20150728

REACTIONS (3)
  - Diplopia [None]
  - Photosensitivity reaction [None]
  - Visual acuity reduced [None]
